FAERS Safety Report 5709914-3 (Version None)
Quarter: 2008Q2

REPORT INFORMATION
  Report Type: 
  Country: None (occurrence: None)
  Receive Date: 20080418
  Receipt Date: 20070502
  Transmission Date: 20081010
  Serious: No
  Sender: FDA-Public Use
  Company Number: US-ASTRAZENECA-2007UW09359

PATIENT
  Sex: Female
  Weight: 70.3 kg

DRUGS (3)
  1. TOPROL-XL [Suspect]
     Indication: HYPERTENSION
     Route: 048
     Dates: start: 20070401
  2. CRESTOR [Concomitant]
     Route: 048
  3. BIRTH CONTROL PILL [Concomitant]

REACTIONS (2)
  - PRURITUS [None]
  - THROAT IRRITATION [None]
